FAERS Safety Report 8615212-0 (Version None)
Quarter: 2012Q3

REPORT INFORMATION
  Report Type: 
  Country: None (occurrence: None)
  Receive Date: 20120823
  Receipt Date: 20120730
  Transmission Date: 20120928
  Serious: No
  Sender: FDA-Public Use
  Company Number: US-009507513-1208USA000160

PATIENT

DRUGS (1)
  1. NUVARING [Suspect]
     Indication: CONTRACEPTION
     Dosage: 0.120 MG/DAY OF ETONOGESTREL AND 0. 015 MG/DAY OF ETHINYL ESTRADIOL/21 DAYS
     Route: 067

REACTIONS (1)
  - UNINTENDED PREGNANCY [None]
